FAERS Safety Report 12142669 (Version 1)
Quarter: 2016Q1

REPORT INFORMATION
  Report Type: Spontaneous
  Country: GB (occurrence: GB)
  Receive Date: 20160303
  Receipt Date: 20160303
  Transmission Date: 20160526
  Serious: Yes (Hospitalization)
  Sender: FDA-Public Use
  Company Number: GB-AUROBINDO-AUR-APL-2016-02005

PATIENT
  Age: 4 Month
  Sex: Female
  Weight: 4.5 kg

DRUGS (1)
  1. OMEPRAZOLE GASTRO-RESISTANT CAPSULES, HARD 10 MG [Suspect]
     Active Substance: OMEPRAZOLE
     Indication: PRODUCT USED FOR UNKNOWN INDICATION
     Dosage: 10 MG, TO BE OPENED AND MIXED WITH MILK
     Route: 048

REACTIONS (3)
  - Infantile apnoea [Unknown]
  - Incorrect route of drug administration [Unknown]
  - Incorrect dose administered [Unknown]

NARRATIVE: CASE EVENT DATE: 20160112
